FAERS Safety Report 5395465-5 (Version None)
Quarter: 2007Q3

REPORT INFORMATION
  Report Type: 
  Country: None (occurrence: None)
  Receive Date: 20070724
  Receipt Date: 20070718
  Transmission Date: 20080115
  Serious: Yes (Hospitalization)
  Sender: FDA-Public Use
  Company Number: B0479588A

PATIENT
  Age: 4 Week
  Sex: Female

DRUGS (1)
  1. RETROVIR [Suspect]
     Route: 048
     Dates: end: 20070706

REACTIONS (2)
  - ACCIDENTAL OVERDOSE [None]
  - ANAEMIA [None]
